FAERS Safety Report 18016387 (Version 3)
Quarter: 2020Q4

REPORT INFORMATION
  Report Type: Spontaneous
  Country: US (occurrence: US)
  Receive Date: 20200714
  Receipt Date: 20201202
  Transmission Date: 20210113
  Serious: Yes (Hospitalization, Other)
  Sender: FDA-Public Use
  Company Number: US-TEVA-2020-US-1799478

PATIENT
  Sex: Male

DRUGS (5)
  1. BUPRENORPHINE. [Concomitant]
     Active Substance: BUPRENORPHINE
  2. SUBOXONE [Concomitant]
     Active Substance: BUPRENORPHINE HYDROCHLORIDE\NALOXONE HYDROCHLORIDE
     Dosage: 2/8 MG
     Route: 065
  3. BUPRENORPHINE/NALOX [Suspect]
     Active Substance: BUPRENORPHINE\NALOXONE
     Dosage: 8MG/2MG
     Route: 065
     Dates: end: 20201022
  4. TRAMADOL. [Suspect]
     Active Substance: TRAMADOL
     Route: 065
     Dates: end: 2018
  5. FENTANYL. [Suspect]
     Active Substance: FENTANYL
     Indication: PRODUCT USED FOR UNKNOWN INDICATION
     Route: 065
     Dates: end: 2018

REACTIONS (10)
  - Drug dependence [Unknown]
  - Nausea [Recovered/Resolved]
  - Headache [Unknown]
  - Hypovitaminosis [Recovered/Resolved]
  - Vomiting [Recovered/Resolved]
  - Spinal operation [Unknown]
  - Drug ineffective [Unknown]
  - Tooth loss [Recovered/Resolved]
  - Liver function test increased [Unknown]
  - Gastrointestinal disorder [Recovered/Resolved]
